FAERS Safety Report 17137760 (Version 1)
Quarter: 2019Q4

REPORT INFORMATION
  Report Type: Spontaneous
  Country: GB (occurrence: GB)
  Receive Date: 20191211
  Receipt Date: 20191211
  Transmission Date: 20200122
  Serious: Yes (Life-Threatening, Hospitalization, Other)
  Sender: FDA-Public Use
  Company Number: GB-BRISTOL-MYERS SQUIBB COMPANY-BMS-2019-116922

PATIENT
  Age: 20 Year
  Sex: Female
  Weight: 93 kg

DRUGS (1)
  1. APIXABAN [Suspect]
     Active Substance: APIXABAN
     Indication: DEEP VEIN THROMBOSIS
     Dosage: 10 MILLIGRAM DAILY
     Route: 048
     Dates: start: 20191020

REACTIONS (3)
  - Condition aggravated [Unknown]
  - Peripheral swelling [Unknown]
  - Deep vein thrombosis [Unknown]
